FAERS Safety Report 6480016-4 (Version None)
Quarter: 2009Q4

REPORT INFORMATION
  Report Type: 
  Country: None (occurrence: None)
  Receive Date: 20091208
  Receipt Date: 20091127
  Transmission Date: 20100525
  Serious: Yes (Other)
  Sender: FDA-Public Use
  Company Number: SE-ABBOTT-06P-150-0353083-00

PATIENT
  Age: 40 Year
  Sex: Female

DRUGS (3)
  1. REDUCTIL [Suspect]
     Indication: OBESITY
     Route: 048
     Dates: end: 20060701
  2. NAPROXEN [Concomitant]
     Indication: DRUG USE FOR UNKNOWN INDICATION
     Route: 048
  3. CETIRIZINE HCL [Concomitant]
     Indication: DRUG USE FOR UNKNOWN INDICATION
     Route: 048

REACTIONS (4)
  - ARTERIAL DISORDER [None]
  - GLOMERULOSCLEROSIS [None]
  - OEDEMA PERIPHERAL [None]
  - RENAL FAILURE [None]
